FAERS Safety Report 17745771 (Version 3)
Quarter: 2020Q3

REPORT INFORMATION
  Report Type: Report from Study
  Country: IN (occurrence: IN)
  Receive Date: 20200505
  Receipt Date: 20200713
  Transmission Date: 20201102
  Serious: Yes (Hospitalization)
  Sender: FDA-Public Use
  Company Number: NVSC2020IN070171

PATIENT
  Age: 57 Year
  Sex: Male
  Weight: 75 kg

DRUGS (5)
  1. CLOPICARD AP [Concomitant]
     Indication: PRODUCT USED FOR UNKNOWN INDICATION
     Dosage: 1 DF, QD
     Route: 048
  2. DYSLIPTIN TG [Concomitant]
     Indication: HYPERLIPIDAEMIA
     Dosage: 1 DF, QD
     Route: 048
  3. GALVUS MET [Suspect]
     Active Substance: METFORMIN HYDROCHLORIDE\VILDAGLIPTIN
     Indication: DIABETES MELLITUS
     Dosage: 2 DF, QD (50/1000) POST MEAL (SINCE 4 YEARS)
     Route: 048
  4. GABALOY NT [Concomitant]
     Indication: PRODUCT USED FOR UNKNOWN INDICATION
     Dosage: 1 DF, QD
     Route: 048
  5. VASODIL [Concomitant]
     Indication: PRODUCT USED FOR UNKNOWN INDICATION
     Dosage: 1 DF, BID
     Route: 048

REACTIONS (7)
  - Blood glucose increased [Unknown]
  - Nasopharyngitis [Unknown]
  - Fatigue [Unknown]
  - Depression [Unknown]
  - Gastric disorder [Unknown]
  - Pyrexia [Unknown]
  - Pain in extremity [Unknown]

NARRATIVE: CASE EVENT DATE: 201912
